FAERS Safety Report 9319803 (Version 1)
Quarter: 2013Q2

REPORT INFORMATION
  Report Type: Spontaneous
  Country: US (occurrence: US)
  Receive Date: 20130530
  Receipt Date: 20130530
  Transmission Date: 20140414
  Serious: No
  Sender: FDA-Public Use
  Company Number: US-B.I. PHARMACEUTICALS,INC./RIDGEFIELD-2013-BI-14952BP

PATIENT
  Sex: Female

DRUGS (5)
  1. COMBIVENT [Suspect]
     Indication: CHRONIC OBSTRUCTIVE PULMONARY DISEASE
     Dosage: STRENGTH: 20 MCG / 100 MCG; DAILY DOSE: 120 MCG / 400 MCG
     Route: 055
     Dates: start: 201304
  2. SPIRIVA [Suspect]
     Indication: CHRONIC OBSTRUCTIVE PULMONARY DISEASE
     Dosage: 18 MCG
     Route: 055
     Dates: start: 2011
  3. COMBIVENT [Suspect]
     Dosage: STRENGTH: 18 MCG / 103 MCG; DAILY DOSE: 144 MCG / 824 MCG
     Route: 055
     Dates: end: 201304
  4. QVAR [Concomitant]
     Indication: CHRONIC OBSTRUCTIVE PULMONARY DISEASE
     Route: 055
  5. PROVENTIL [Concomitant]
     Indication: CHRONIC OBSTRUCTIVE PULMONARY DISEASE
     Route: 055

REACTIONS (1)
  - Respiratory tract irritation [Not Recovered/Not Resolved]
